FAERS Safety Report 14984225 (Version 3)
Quarter: 2020Q4

REPORT INFORMATION
  Report Type: Report from Study
  Country: FR (occurrence: FR)
  Receive Date: 20180607
  Receipt Date: 20201104
  Transmission Date: 20210113
  Serious: Yes (Death, Other)
  Sender: FDA-Public Use
  Company Number: FR-JAZZ-2017-FR-015718

PATIENT

DRUGS (1)
  1. DEFITELIO [Suspect]
     Active Substance: DEFIBROTIDE SODIUM
     Indication: VENOOCCLUSIVE LIVER DISEASE
     Dosage: 25 MG/KG, QD
     Route: 042
     Dates: start: 20150130, end: 20150214

REACTIONS (4)
  - Incorrect product administration duration [Unknown]
  - Rectal haemorrhage [Unknown]
  - Graft versus host disease [Unknown]
  - Death [Fatal]

NARRATIVE: CASE EVENT DATE: 20150217
